FAERS Safety Report 8261034-2 (Version None)
Quarter: 2012Q2

REPORT INFORMATION
  Report Type: 
  Country: None (occurrence: None)
  Receive Date: 20120405
  Receipt Date: 20120323
  Transmission Date: 20120825
  Serious: Yes (Congenital Anomaly)
  Sender: FDA-Public Use
  Company Number: PHHY2012CA026118

PATIENT
  Sex: Female

DRUGS (4)
  1. CETIRIZINE [Concomitant]
     Dosage: 20 MG
  2. GLEEVEC [Suspect]
  3. TYLENOL W/ CODEINE NO. 4 [Concomitant]
  4. ONDANSETRON [Concomitant]
     Dosage: 8 MG

REACTIONS (2)
  - FOETAL EXPOSURE DURING PREGNANCY [None]
  - SYNOSTOSIS [None]
